FAERS Safety Report 12611619 (Version 4)
Quarter: 2016Q4

REPORT INFORMATION
  Report Type: Other
  Country: US (occurrence: US)
  Receive Date: 20160801
  Receipt Date: 20161117
  Transmission Date: 20170207
  Serious: Yes (Hospitalization, Other)
  Sender: FDA-Public Use
  Company Number: US-ACORDA-ACO_126453_2016

PATIENT
  Age: 35 Year
  Sex: Female

DRUGS (8)
  1. XANAX [Concomitant]
     Active Substance: ALPRAZOLAM
     Indication: ANXIETY
     Dosage: 1 MG, QID
     Route: 048
     Dates: start: 201604
  2. BENTYL [Concomitant]
     Active Substance: DICYCLOMINE HYDROCHLORIDE
     Indication: MUSCLE SPASMS
     Dosage: 20 MG, BID
     Route: 048
     Dates: start: 201604
  3. PLAQUENIL [Concomitant]
     Active Substance: HYDROXYCHLOROQUINE SULFATE
     Indication: SYSTEMIC LUPUS ERYTHEMATOSUS
     Dosage: 200 MG, BID
     Route: 048
     Dates: start: 201604
  4. PERCOCET [Concomitant]
     Active Substance: ACETAMINOPHEN\OXYCODONE HYDROCHLORIDE
     Indication: PAIN
     Dosage: 10/325, QID
     Route: 048
     Dates: start: 201604
  5. PLEGRIDY [Suspect]
     Active Substance: PEGINTERFERON BETA-1A
     Indication: PRODUCT USED FOR UNKNOWN INDICATION
     Dosage: UNK
  6. AMPYRA [Suspect]
     Active Substance: DALFAMPRIDINE
     Indication: GAIT DISTURBANCE
     Dosage: UNK
     Route: 065
  7. OXYCODONE [Concomitant]
     Active Substance: OXYCODONE
     Indication: PAIN
     Dosage: 15 MG, QID
     Route: 048
     Dates: start: 201604
  8. EFFEXOR [Concomitant]
     Active Substance: VENLAFAXINE HYDROCHLORIDE
     Indication: DEPRESSION
     Dosage: 125 MG, QD
     Route: 048
     Dates: start: 201604

REACTIONS (41)
  - Temperature intolerance [Recovered/Resolved]
  - Injection site pain [Recovered/Resolved]
  - Weight decreased [Unknown]
  - Abdominal discomfort [Recovering/Resolving]
  - Irritability [Recovered/Resolved]
  - Influenza like illness [Recovered/Resolved]
  - Sleep terror [Unknown]
  - Fatigue [Unknown]
  - Dysstasia [Recovering/Resolving]
  - Feeling hot [Recovered/Resolved]
  - Pallor [Recovered/Resolved]
  - Anxiety [Unknown]
  - Nervousness [Recovered/Resolved]
  - Hypokinesia [Recovered/Resolved]
  - Hyperhidrosis [Unknown]
  - Fear [Unknown]
  - Gait disturbance [Recovering/Resolving]
  - Feeling abnormal [Unknown]
  - Pruritus [Unknown]
  - Eating disorder [Unknown]
  - Dislocation of vertebra [Unknown]
  - Lethargy [Recovering/Resolving]
  - Systemic lupus erythematosus [Unknown]
  - Frustration tolerance decreased [Recovered/Resolved]
  - Stress [Unknown]
  - Back injury [Recovering/Resolving]
  - Chills [Unknown]
  - Headache [Unknown]
  - Tension [Recovered/Resolved]
  - Musculoskeletal pain [Unknown]
  - Syncope [Unknown]
  - Musculoskeletal stiffness [Unknown]
  - Vomiting [Recovering/Resolving]
  - Dizziness [Recovering/Resolving]
  - Multiple sclerosis relapse [Unknown]
  - Injection site erythema [Recovered/Resolved]
  - Migraine [Recovered/Resolved]
  - Pain [Unknown]
  - Musculoskeletal stiffness [Recovering/Resolving]
  - Arthralgia [Unknown]
  - Injection site necrosis [Recovered/Resolved]

NARRATIVE: CASE EVENT DATE: 201606
